FAERS Safety Report 4877926-8 (Version None)
Quarter: 2005Q4

REPORT INFORMATION
  Report Type: 
  Country: None (occurrence: None)
  Receive Date: 20051206
  Receipt Date: 20051101
  Transmission Date: 20060501
  Serious: No
  Sender: FDA-Public Use
  Company Number: USA0509107738

PATIENT
  Sex: Female
  Weight: 67 kg

DRUGS (2)
  1. CYMBALTA [Suspect]
     Indication: DEPRESSION
     Dosage: 60 MG
     Dates: start: 20050208, end: 20050803
  2. HYDROCHLOROTHIAZIDE [Concomitant]

REACTIONS (1)
  - HYPERTENSION [None]
